FAERS Safety Report 6616821-0 (Version None)
Quarter: 2010Q1

REPORT INFORMATION
  Report Type: 
  Country: None (occurrence: None)
  Receive Date: 20100305
  Receipt Date: 20100303
  Transmission Date: 20100710
  Serious: Yes (Other)
  Sender: FDA-Public Use
  Company Number: US-GENENTECH-296425

PATIENT
  Sex: Female
  Weight: 61.224 kg

DRUGS (10)
  1. XOLAIR [Suspect]
     Indication: ASTHMA
     Dosage: 150 MG, Q2W
     Route: 058
     Dates: start: 20030801
  2. IMMUNE GLOBULIN INTRAVENOUS (HUMAN) [Concomitant]
     Indication: DRUG USE FOR UNKNOWN INDICATION
  3. ALLEGRA [Concomitant]
     Indication: DRUG USE FOR UNKNOWN INDICATION
  4. ASTELIN [Concomitant]
     Indication: DRUG USE FOR UNKNOWN INDICATION
  5. RHINOCORT [Concomitant]
     Indication: DRUG USE FOR UNKNOWN INDICATION
  6. PULMICORT [Concomitant]
     Indication: DRUG USE FOR UNKNOWN INDICATION
  7. FORADIL [Concomitant]
     Indication: DRUG USE FOR UNKNOWN INDICATION
  8. THYROID TAB [Concomitant]
     Indication: DRUG USE FOR UNKNOWN INDICATION
  9. COUMADIN [Concomitant]
     Indication: DRUG USE FOR UNKNOWN INDICATION
  10. PRAVACHOL [Concomitant]
     Indication: DRUG USE FOR UNKNOWN INDICATION

REACTIONS (1)
  - TYPE III IMMUNE COMPLEX MEDIATED REACTION [None]
